FAERS Safety Report 8861901 (Version 2)
Quarter: 2012Q4

REPORT INFORMATION
  Report Type: 
  Country: US (occurrence: None)
  Receive Date: 20121026
  Receipt Date: 20121108
  Transmission Date: 20130627
  Serious: Yes (Death, Hospitalization)
  Sender: FDA-Public Use
  Company Number: None

PATIENT
  Age: 78 Year
  Sex: Female
  Weight: 27.22 kg

DRUGS (1)
  1. METOCLOPRAMIDE [Suspect]
     Dosage: 1 im
     Route: 030
     Dates: start: 20120816, end: 20120816

REACTIONS (10)
  - Headache [None]
  - Dysarthria [None]
  - Eye discharge [None]
  - Skin ulcer [None]
  - Decreased appetite [None]
  - Hypersomnia [None]
  - Injection site infection [None]
  - Renal mass [None]
  - Staphylococcal infection [None]
  - Flank pain [None]
